FAERS Safety Report 24818985 (Version 2)
Quarter: 2025Q2

REPORT INFORMATION
  Report Type: Spontaneous
  Country: US (occurrence: US)
  Receive Date: 20250108
  Receipt Date: 20250522
  Transmission Date: 20250717
  Serious: Yes (Hospitalization, Other)
  Sender: PFIZER
  Company Number: US-PFIZER INC-202500002525

PATIENT
  Age: 46 Year
  Sex: Female
  Weight: 97.98 kg

DRUGS (3)
  1. DEPO-PROVERA [Suspect]
     Active Substance: MEDROXYPROGESTERONE ACETATE
     Indication: Contraception
     Dosage: UNK, EVERY 3 MONTHS (IN ARM)
     Route: 030
     Dates: start: 1995
  2. MEDROXYPROGESTERONE ACETATE [Suspect]
     Active Substance: MEDROXYPROGESTERONE ACETATE
     Indication: Contraception
     Dosage: UNK, EVERY 3 MONTHS (IN ARM)
     Route: 030
  3. LEVOTHYROXINE [Concomitant]
     Active Substance: LEVOTHYROXINE
     Indication: Hypothyroidism
     Dosage: 50 UG, 1X/DAY
     Dates: start: 2006

REACTIONS (15)
  - Meningioma [Not Recovered/Not Resolved]
  - Dry eye [Unknown]
  - Foreign body sensation in eyes [Unknown]
  - Vision blurred [Not Recovered/Not Resolved]
  - Eye movement disorder [Unknown]
  - Eye pain [Not Recovered/Not Resolved]
  - Nerve injury [Unknown]
  - Sensory disturbance [Unknown]
  - Gingival pain [Not Recovered/Not Resolved]
  - Lip pain [Not Recovered/Not Resolved]
  - Memory impairment [Unknown]
  - Facial pain [Unknown]
  - Fall [Unknown]
  - Pain [Unknown]
  - Product dose omission issue [Unknown]

NARRATIVE: CASE EVENT DATE: 20220901
